FAERS Safety Report 12005572 (Version 1)
Quarter: 2016Q1

REPORT INFORMATION
  Report Type: Report from Study
  Country: CA (occurrence: CA)
  Receive Date: 20160204
  Receipt Date: 20160204
  Transmission Date: 20160526
  Serious: Yes (Other)
  Sender: FDA-Public Use
  Company Number: CA-JNJFOC-20160201606

PATIENT
  Age: 40 Year
  Sex: Female
  Weight: 71 kg

DRUGS (2)
  1. TECTA [Concomitant]
     Active Substance: PANTOPRAZOLE MAGNESIUM
     Route: 065
  2. REMICADE [Suspect]
     Active Substance: INFLIXIMAB
     Indication: PSORIASIS
     Route: 042
     Dates: start: 2009

REACTIONS (3)
  - Pain [Unknown]
  - Systemic lupus erythematosus [Unknown]
  - Chills [Unknown]

NARRATIVE: CASE EVENT DATE: 20160118
